FAERS Safety Report 19025358 (Version 1)
Quarter: 2021Q1

REPORT INFORMATION
  Report Type: Spontaneous
  Country: SE (occurrence: SE)
  Receive Date: 20210318
  Receipt Date: 20210318
  Transmission Date: 20210420
  Serious: Yes (Hospitalization, Other)
  Sender: FDA-Public Use
  Company Number: SE-SA-2021SA084805

PATIENT
  Age: 34 Year
  Sex: Female

DRUGS (3)
  1. BUPRENORPHINE. [Concomitant]
     Active Substance: BUPRENORPHINE
     Dosage: DAILY DOSE 10 MG
     Dates: start: 202006
  2. ZOLPIDEM TARTRATE. [Suspect]
     Active Substance: ZOLPIDEM TARTRATE
     Dosage: 2 TABLETS (20 MG)
     Route: 048
     Dates: start: 20210217, end: 20210217
  3. SERTRALINE [Concomitant]
     Active Substance: SERTRALINE HYDROCHLORIDE
     Dosage: 200 MG, QD
     Dates: start: 201805

REACTIONS (4)
  - Prescription drug used without a prescription [Unknown]
  - Suicide attempt [Recovered/Resolved]
  - Somnambulism [Recovered/Resolved]
  - Intentional overdose [Recovered/Resolved]

NARRATIVE: CASE EVENT DATE: 20210217
